FAERS Safety Report 6056798-2 (Version None)
Quarter: 2009Q1

REPORT INFORMATION
  Report Type: 
  Country: None (occurrence: None)
  Receive Date: 20090129
  Receipt Date: 20090115
  Transmission Date: 20090719
  Serious: Yes (Other)
  Sender: FDA-Public Use
  Company Number: US-CELGENEUS-163-21880-09010817

PATIENT
  Sex: Male

DRUGS (3)
  1. REVLIMID [Suspect]
     Indication: MYELODYSPLASTIC SYNDROME
     Route: 048
     Dates: start: 20061024
  2. REVLIMID [Suspect]
     Route: 048
     Dates: start: 20060615, end: 20060701
  3. REVLIMID [Suspect]
     Route: 048
     Dates: start: 20060731, end: 20061001

REACTIONS (1)
  - GENERAL PHYSICAL HEALTH DETERIORATION [None]
